FAERS Safety Report 11429863 (Version 1)
Quarter: 2015Q3

REPORT INFORMATION
  Report Type: Spontaneous
  Country: US (occurrence: US)
  Receive Date: 20150828
  Receipt Date: 20150828
  Transmission Date: 20151125
  Serious: No
  Sender: FDA-Public Use
  Company Number: US-ROCHE-1198040

PATIENT
  Sex: Female

DRUGS (3)
  1. PEGASYS [Suspect]
     Active Substance: PEGINTERFERON ALFA-2A
     Indication: CHRONIC HEPATITIS C
     Route: 058
     Dates: start: 20130221
  2. RIBAVIRIN. [Suspect]
     Active Substance: RIBAVIRIN
     Indication: CHRONIC HEPATITIS C
     Route: 048
     Dates: start: 20130221
  3. RIBAVIRIN. [Suspect]
     Active Substance: RIBAVIRIN
     Route: 048

REACTIONS (10)
  - Haematocrit decreased [Unknown]
  - Anaemia [Unknown]
  - Eczema [Unknown]
  - Impaired healing [Unknown]
  - Discomfort [Unknown]
  - Skin ulcer [Unknown]
  - Depressed mood [Unknown]
  - Neutropenia [Unknown]
  - Fatigue [Unknown]
  - Pruritus [Unknown]
